FAERS Safety Report 8223346-8 (Version None)
Quarter: 2012Q1

REPORT INFORMATION
  Report Type: 
  Country: None (occurrence: None)
  Receive Date: 20120314
  Receipt Date: 20120131
  Transmission Date: 20120608
  Serious: Yes (Other)
  Sender: FDA-Public Use
  Company Number: 2012SP012871

PATIENT
  Sex: Male

DRUGS (5)
  1. ANAGRELIDE HCL [Concomitant]
  2. HYDROXYUREA [Concomitant]
  3. INTERFERON ALFA-2B RECOMBINANT (INTERFERON ALFA-2B) [Suspect]
     Indication: PRODUCT USED FOR UNKNOWN INDICATION
     Dosage: UNK
  4. WARFARIN SODIUM [Concomitant]
  5. ASPIRIN [Concomitant]

REACTIONS (1)
  - HAEMORRHAGE [None]
